FAERS Safety Report 6544949-2 (Version None)
Quarter: 2010Q1

REPORT INFORMATION
  Report Type: 
  Country: None (occurrence: None)
  Receive Date: 20100121
  Receipt Date: 20100113
  Transmission Date: 20100710
  Serious: Yes (Other)
  Sender: FDA-Public Use
  Company Number: US-BAXTER-2009BH019894

PATIENT
  Age: 70 Year
  Sex: Female
  Weight: 95 kg

DRUGS (10)
  1. GAMMAGARD LIQUID [Suspect]
     Indication: PANCYTOPENIA
     Route: 042
     Dates: start: 20091008
  2. GAMMAGARD LIQUID [Suspect]
     Indication: CHRONIC LYMPHOCYTIC LEUKAEMIA
     Route: 042
     Dates: start: 20091008
  3. GAMMAGARD LIQUID [Suspect]
     Route: 042
     Dates: start: 20091228, end: 20091228
  4. GAMMAGARD LIQUID [Suspect]
     Route: 042
     Dates: start: 20091228, end: 20091228
  5. DIPHENHYDRAMINE [Concomitant]
     Indication: PREMEDICATION
     Route: 048
     Dates: start: 20090801
  6. REGLAN [Concomitant]
     Route: 048
     Dates: start: 20091209
  7. GEMFIBROZIL [Concomitant]
     Route: 048
  8. LISINOPRIL [Concomitant]
     Route: 048
  9. NEXIUM /UNK/ [Concomitant]
     Route: 048
  10. HYDROCODONE BITARTRATE AND ACETAMINOPHEN [Concomitant]
     Route: 048

REACTIONS (4)
  - BACK PAIN [None]
  - CHILLS [None]
  - CYANOSIS [None]
  - DYSPNOEA [None]
